FAERS Safety Report 5212551-0 (Version None)
Quarter: 2007Q1

REPORT INFORMATION
  Report Type: 
  Country: None (occurrence: None)
  Receive Date: 20070118
  Receipt Date: 20070108
  Transmission Date: 20070707
  Serious: Yes (Hospitalization)
  Sender: FDA-Public Use
  Company Number: US-SHR-US-2006-036704

PATIENT
  Age: 64 Year
  Sex: Male

DRUGS (2)
  1. BETASERON [Suspect]
     Route: 058
     Dates: start: 19970805, end: 20051201
  2. TYSABRI [Suspect]

REACTIONS (4)
  - ATRIAL FIBRILLATION [None]
  - DRUG INEFFECTIVE [None]
  - MULTI-ORGAN FAILURE [None]
  - PAIN [None]
